FAERS Safety Report 4580971-3 (Version None)
Quarter: 2005Q1

REPORT INFORMATION
  Report Type: 
  Country: None (occurrence: None)
  Receive Date: 20050214
  Receipt Date: 20040708
  Transmission Date: 20050727
  Serious: No
  Sender: FDA-Public Use
  Company Number: US-GLAXOSMITHKLINE-A0517429A

PATIENT
  Age: 17 Year
  Sex: Female

DRUGS (3)
  1. LAMICTAL [Suspect]
     Dosage: 100MG TWICE PER DAY
     Route: 048
     Dates: start: 20040511
  2. CELEXA [Concomitant]
  3. ORAL CONTRACEPTIVE [Concomitant]

REACTIONS (1)
  - AGITATION [None]
